FAERS Safety Report 4774019-5 (Version None)
Quarter: 2005Q3

REPORT INFORMATION
  Report Type: 
  Country: None (occurrence: None)
  Receive Date: 20050920
  Receipt Date: 20050822
  Transmission Date: 20060218
  Serious: Yes (Death)
  Sender: FDA-Public Use
  Company Number: BR-BRISTOL-MYERS SQUIBB COMPANY-13115555

PATIENT

DRUGS (5)
  1. CYCLOPHOSPHAMIDE [Suspect]
     Indication: NASOPHARYNGEAL CANCER
  2. VINCRISTINE SULFATE [Suspect]
     Indication: NASOPHARYNGEAL CANCER
  3. DOXORUBICIN HCL [Suspect]
     Indication: NASOPHARYNGEAL CANCER
  4. CISPLATIN [Suspect]
     Indication: NASOPHARYNGEAL CANCER
  5. RADIOTHERAPY [Suspect]
     Indication: NASOPHARYNGEAL CANCER

REACTIONS (1)
  - CARDIAC FAILURE [None]
